FAERS Safety Report 9198855 (Version 1)
Quarter: 2013Q1

REPORT INFORMATION
  Report Type: Spontaneous
  Country: FR (occurrence: FR)
  Receive Date: 20130329
  Receipt Date: 20130329
  Transmission Date: 20140127
  Serious: Yes (Other)
  Sender: FDA-Public Use
  Company Number: FR-SANOFI-AVENTIS-2013SA030851

PATIENT
  Sex: Male

DRUGS (5)
  1. PLAVIX [Suspect]
     Indication: MYOCARDIAL INFARCTION
     Route: 048
  2. ATENOLOL [Concomitant]
     Dosage: STRENGTH: 50 MG
  3. SERTRALINE [Concomitant]
  4. BETA BLOCKING AGENTS [Concomitant]
  5. PERINDOPRIL [Concomitant]

REACTIONS (1)
  - Bladder cancer [Unknown]
